FAERS Safety Report 7982321-9 (Version None)
Quarter: 2011Q4

REPORT INFORMATION
  Report Type: 
  Country: None (occurrence: None)
  Receive Date: 20111215
  Receipt Date: 20111206
  Transmission Date: 20120403
  Serious: Yes (Other)
  Sender: FDA-Public Use
  Company Number: PHHO2011TR020624

PATIENT
  Sex: Female
  Weight: 63 kg

DRUGS (3)
  1. AFINITOR [Suspect]
     Dosage: 10 MG, UNK
     Route: 048
     Dates: start: 20111105
  2. AFINITOR [Suspect]
     Indication: PANCREATIC NEUROENDOCRINE TUMOUR METASTATIC
     Dosage: 10 MG, UNK
     Route: 048
     Dates: end: 20111010
  3. OCTREOTIDE ACETATE [Concomitant]
     Dosage: 20 MG, UNK
     Dates: end: 20111006

REACTIONS (2)
  - BRONCHOSPASM [None]
  - FACE OEDEMA [None]
